FAERS Safety Report 20542999 (Version 1)
Quarter: 2022Q1

REPORT INFORMATION
  Report Type: Report from Study
  Country: MX (occurrence: MX)
  Receive Date: 20220302
  Receipt Date: 20220302
  Transmission Date: 20220423
  Serious: Yes (Other)
  Sender: FDA-Public Use
  Company Number: MX-NOVARTISPH-NVSC2022MX049276

PATIENT
  Age: 90 Year
  Sex: Female
  Weight: 59 kg

DRUGS (11)
  1. DIOVAN [Suspect]
     Active Substance: VALSARTAN
     Indication: Hypertension
     Dosage: 1 DOSAGE FORM, QD
     Route: 048
     Dates: start: 201910
  2. PREGABALIN [Suspect]
     Active Substance: PREGABALIN
     Indication: Neuropathy peripheral
     Dosage: 1 DOSAGE FORM, QD
     Route: 048
     Dates: start: 20220224
  3. ASPIRIN [Suspect]
     Active Substance: ASPIRIN
     Indication: Coronary artery occlusion
     Dosage: 1 DOSAGE FORM, QOD
     Route: 048
     Dates: start: 2012, end: 201910
  4. CLOPIDOGREL [Concomitant]
     Active Substance: CLOPIDOGREL BISULFATE
     Indication: Coronary artery occlusion
     Dosage: 1 DOSAGE FORM, QOD
     Route: 048
     Dates: start: 2012
  5. CLOPIDOGREL [Concomitant]
     Active Substance: CLOPIDOGREL BISULFATE
     Dosage: 1 DOSAGE FORM, QD
     Route: 048
  6. DORZOLAMIDE\TIMOLOL [Concomitant]
     Active Substance: DORZOLAMIDE\TIMOLOL
     Indication: Glaucoma
     Dosage: 1 DOSAGE FORM, BID (DROP)
     Route: 047
     Dates: start: 2012
  7. TRAVOPROST [Concomitant]
     Active Substance: TRAVOPROST
     Indication: Glaucoma
     Dosage: 1 DOSAGE FORM, QD (DROP)
     Route: 047
     Dates: start: 2012
  8. BRIMONIDINE [Concomitant]
     Active Substance: BRIMONIDINE TARTRATE
     Indication: Glaucoma
     Dosage: 1 DOSAGE FORM, BID (DROP)
     Route: 047
     Dates: start: 2018
  9. ATORVASTATIN [Concomitant]
     Active Substance: ATORVASTATIN
     Indication: Hypertriglyceridaemia
     Dosage: 1 DOSAGE FORM, QD
     Route: 048
     Dates: start: 2020
  10. VITAMIN D [Concomitant]
     Active Substance: VITAMIN D NOS
     Indication: Osteoporosis
     Dosage: 1 DOSAGE FORM OF 4000 UNITS, MONDAY, WEDNESDAY AND FRIDAY
     Route: 048
     Dates: start: 2017
  11. NEUROBION [Concomitant]
     Active Substance: CYANOCOBALAMIN\PYRIDOXINE\THIAMINE
     Indication: Immune system disorder
     Dosage: 1 DOSAGE FORM, EVERY MONTH AND A HALF
     Route: 030
     Dates: start: 20220202

REACTIONS (9)
  - Neuropathy peripheral [Recovering/Resolving]
  - Burning sensation [Recovering/Resolving]
  - Deafness [Not Recovered/Not Resolved]
  - Gastrointestinal haemorrhage [Recovered/Resolved]
  - Gastritis [Unknown]
  - Somnolence [Not Recovered/Not Resolved]
  - Weight increased [Not Recovered/Not Resolved]
  - Faeces discoloured [Unknown]
  - Memory impairment [Not Recovered/Not Resolved]

NARRATIVE: CASE EVENT DATE: 20191001
